FAERS Safety Report 9081923 (Version 2)
Quarter: 2013Q1

REPORT INFORMATION
  Report Type: Spontaneous
  Country: US (occurrence: US)
  Receive Date: 20130218
  Receipt Date: 20130313
  Transmission Date: 20140127
  Serious: No
  Sender: FDA-Public Use
  Company Number: US-PFIZER INC-2013057929

PATIENT
  Age: 53 Year
  Sex: Male

DRUGS (1)
  1. ELELYSO [Suspect]
     Indication: GAUCHER^S DISEASE
     Dosage: 5400 UNITS OF 2 WEEKS
     Route: 042
     Dates: start: 20130126

REACTIONS (1)
  - Headache [Recovered/Resolved]
